FAERS Safety Report 4985923-7 (Version None)
Quarter: 2006Q2

REPORT INFORMATION
  Report Type: 
  Country: None (occurrence: None)
  Receive Date: 20060421
  Receipt Date: 20060410
  Transmission Date: 20061013
  Serious: Yes (Other)
  Sender: FDA-Public Use
  Company Number: 13879

PATIENT
  Age: 43 Year
  Sex: Male

DRUGS (4)
  1. PAMIDRONATE DISODIUM [Suspect]
     Indication: OSTEOPOROSIS
     Dosage: 90 MG MONTHLY
  2. SODIUM CROMOGLYCATE [Concomitant]
  3. RANITIDINE [Concomitant]
  4. ADRENALINE [Concomitant]

REACTIONS (6)
  - BONE DISORDER [None]
  - EXCESSIVE GRANULATION TISSUE [None]
  - OSTEOMYELITIS [None]
  - PAIN [None]
  - PALATAL DISORDER [None]
  - PARAESTHESIA [None]
